FAERS Safety Report 5693517-3 (Version None)
Quarter: 2008Q2

REPORT INFORMATION
  Report Type: 
  Country: None (occurrence: None)
  Receive Date: 20080403
  Receipt Date: 20080326
  Transmission Date: 20081010
  Serious: Yes (Hospitalization)
  Sender: FDA-Public Use
  Company Number: B0513913A

PATIENT
  Age: 63 Year
  Sex: Female

DRUGS (7)
  1. LAPATINIB [Suspect]
     Dosage: 1250MG PER DAY
     Route: 048
     Dates: start: 20080201
  2. CAPECITABINE [Suspect]
     Dosage: 1650MG TWICE PER DAY
     Route: 048
     Dates: start: 20080201
  3. LANSOPRAZOLE [Concomitant]
     Dosage: 30MG PER DAY
  4. ATENOLOL [Concomitant]
  5. ZOLEDRONIC ACID [Concomitant]
     Route: 042
  6. CO-CODAMOL [Concomitant]
  7. DEXAMETHASONE TAB [Concomitant]
     Dosage: 4MG TWICE PER DAY

REACTIONS (11)
  - BLOOD POTASSIUM DECREASED [None]
  - DYSURIA [None]
  - FAECAL INCONTINENCE [None]
  - FAECES PALE [None]
  - HAEMORRHOIDS [None]
  - HERPES ZOSTER [None]
  - MALAISE [None]
  - PYREXIA [None]
  - RASH [None]
  - URINARY INCONTINENCE [None]
  - URINARY TRACT INFECTION [None]
